FAERS Safety Report 17388998 (Version 1)
Quarter: 2020Q1

REPORT INFORMATION
  Report Type: Spontaneous
  Country: US (occurrence: US)
  Receive Date: 20200207
  Receipt Date: 20200207
  Transmission Date: 20200409
  Serious: Yes (Other)
  Sender: FDA-Public Use
  Company Number: US-PFIZER INC-2020052566

PATIENT
  Sex: Female

DRUGS (1)
  1. PROCAINE BENZYLPENICILLIN [Suspect]
     Active Substance: PENICILLIN G PROCAINE
     Dosage: UNK

REACTIONS (2)
  - Drug abuse [Unknown]
  - Overdose [Unknown]
